FAERS Safety Report 5472105-8 (Version None)
Quarter: 2007Q3

REPORT INFORMATION
  Report Type: 
  Country: None (occurrence: None)
  Receive Date: 20070925
  Receipt Date: 20070907
  Transmission Date: 20080115
  Serious: Yes (Other)
  Sender: FDA-Public Use
  Company Number: US-1164070

PATIENT

DRUGS (1)
  1. BSS [Suspect]
     Indication: EYE LASER SURGERY
     Dosage: 15 ML OPHTHALMIC
     Route: 047
     Dates: start: 20070906, end: 20070906

REACTIONS (2)
  - EXPIRED DRUG ADMINISTERED [None]
  - POST PROCEDURAL COMPLICATION [None]
